FAERS Safety Report 16614760 (Version 2)
Quarter: 2019Q3

REPORT INFORMATION
  Report Type: Spontaneous
  Country: IL (occurrence: IL)
  Receive Date: 20190723
  Receipt Date: 20190725
  Transmission Date: 20191004
  Serious: Yes (Death, Hospitalization)
  Sender: FDA-Public Use
  Company Number: IL-ACTELION-A-CH2018-172889

PATIENT
  Age: 69 Year
  Sex: Male

DRUGS (9)
  1. OPSUMIT [Suspect]
     Active Substance: MACITENTAN
     Dosage: 10 MG, QD
     Route: 048
     Dates: start: 20190520, end: 20190608
  2. REVATIO [Concomitant]
     Active Substance: SILDENAFIL CITRATE
  3. BASAGLAR [Concomitant]
     Active Substance: INSULIN GLARGINE
  4. OXYGEN. [Concomitant]
     Active Substance: OXYGEN
  5. OPSUMIT [Suspect]
     Active Substance: MACITENTAN
     Indication: PULMONARY HYPERTENSION
     Dosage: 10 MG, QD
     Route: 048
     Dates: start: 20180521, end: 20190520
  6. ASPIRIN. [Concomitant]
     Active Substance: ASPIRIN
  7. NORMITEN [Concomitant]
     Active Substance: ATENOLOL
  8. SIMVASTATIN. [Concomitant]
     Active Substance: SIMVASTATIN
  9. JANUET [Concomitant]
     Active Substance: METFORMIN HYDROCHLORIDE\SITAGLIPTIN PHOSPHATE

REACTIONS (10)
  - Oedema peripheral [Recovering/Resolving]
  - Therapy cessation [Recovered/Resolved]
  - Pulmonary hypertension [Not Recovered/Not Resolved]
  - Treatment noncompliance [Unknown]
  - Multiple organ dysfunction syndrome [Fatal]
  - General physical health deterioration [Not Recovered/Not Resolved]
  - Pulmonary oedema [Recovering/Resolving]
  - Gait disturbance [Recovering/Resolving]
  - Cyanosis [Not Recovered/Not Resolved]
  - Dyspnoea [Recovering/Resolving]

NARRATIVE: CASE EVENT DATE: 20180615
